FAERS Safety Report 8583887-0 (Version None)
Quarter: 2012Q3

REPORT INFORMATION
  Report Type: 
  Country: None (occurrence: None)
  Receive Date: 20120810
  Receipt Date: 20120802
  Transmission Date: 20120928
  Serious: Yes (Other)
  Sender: FDA-Public Use
  Company Number: JP-009507513-1204USA01657

PATIENT

DRUGS (5)
  1. EPIRUBICIN [Suspect]
     Indication: BREAST CANCER
     Route: 041
  2. FOSAPREPITANT DIMEGLUMINE [Suspect]
     Indication: PROPHYLAXIS OF NAUSEA AND VOMITING
     Dosage: 150 MG, ONCE
     Route: 041
     Dates: start: 20120206, end: 20120206
  3. FOSAPREPITANT DIMEGLUMINE [Suspect]
     Dosage: 150 MG, ONCE
     Route: 041
     Dates: start: 20120227, end: 20120227
  4. CYCLOPHOSPHAMIDE [Concomitant]
  5. FOSAPREPITANT DIMEGLUMINE [Suspect]
     Dosage: 150 MG, ONCE
     Route: 041
     Dates: start: 20120319, end: 20120319

REACTIONS (3)
  - INJECTION SITE VASCULITIS [None]
  - INJECTION SITE PAIN [None]
  - INJECTION SITE PHLEBITIS [None]
